FAERS Safety Report 14955577 (Version 1)
Quarter: 2018Q2

REPORT INFORMATION
  Report Type: Spontaneous
  Country: FR (occurrence: FR)
  Receive Date: 20180531
  Receipt Date: 20180531
  Transmission Date: 20180711
  Serious: Yes (Other)
  Sender: FDA-Public Use
  Company Number: FR-TEVA-2018-FR-899802

PATIENT
  Age: 44 Year
  Sex: Female
  Weight: 116 kg

DRUGS (1)
  1. SUMATRIPTAN TEVA 50 MG, COMPRIM? PELLICUL? S?CABLE [Suspect]
     Active Substance: SUMATRIPTAN SUCCINATE
     Indication: MIGRAINE
     Dosage: 50 MILLIGRAM DAILY;
     Route: 048
     Dates: start: 20180101, end: 20180311

REACTIONS (4)
  - Fatigue [Recovered/Resolved]
  - Somnolence [Recovered/Resolved]
  - Hot flush [Recovered/Resolved]
  - Vision blurred [Recovered/Resolved]

NARRATIVE: CASE EVENT DATE: 20180311
